FAERS Safety Report 7354122-6 (Version None)
Quarter: 2011Q1

REPORT INFORMATION
  Report Type: 
  Country: None (occurrence: None)
  Receive Date: 20110315
  Receipt Date: 20110307
  Transmission Date: 20110831
  Serious: Yes (Other)
  Sender: FDA-Public Use
  Company Number: US-RB-023522-11

PATIENT
  Age: 31 Year
  Sex: Male

DRUGS (2)
  1. XANAX [Suspect]
     Indication: PRODUCT USED FOR UNKNOWN INDICATION
     Dosage: UNKNOWN DOSING DETAILS
     Route: 065
  2. SUBOXONE [Suspect]
     Indication: PRODUCT USED FOR UNKNOWN INDICATION
     Dosage: SUBOXONE SUBLINGUAL FILM--DOSAGE UNKNOWN AT THIS TIME.
     Route: 065

REACTIONS (2)
  - MEMORY IMPAIRMENT [None]
  - LOSS OF CONSCIOUSNESS [None]
